FAERS Safety Report 8758781 (Version 2)
Quarter: 2012Q4

REPORT INFORMATION
  Report Type: 
  Country: ID (occurrence: ID)
  Receive Date: 20120829
  Receipt Date: 20120829
  Transmission Date: 20130627
  Serious: Yes (Death, Other)
  Sender: FDA-Public Use
  Company Number: ID-BAYER-2012-001040

PATIENT
  Age: 53 Year
  Sex: Male

DRUGS (1)
  1. SORAFENIB [Suspect]
     Indication: HEPATIC NEOPLASM MALIGNANT
     Dosage: 400 mg, BID
     Dates: start: 20100617

REACTIONS (2)
  - Death [Fatal]
  - Mouth haemorrhage [Not Recovered/Not Resolved]
